FAERS Safety Report 22056324 (Version 4)
Quarter: 2023Q2

REPORT INFORMATION
  Report Type: Spontaneous
  Country: AT (occurrence: AT)
  Receive Date: 20230302
  Receipt Date: 20230406
  Transmission Date: 20230722
  Serious: Yes (Hospitalization, Other)
  Sender: FDA-Public Use
  Company Number: AT-ABBVIE-4325975

PATIENT
  Sex: Female
  Weight: 70 kg

DRUGS (2)
  1. VENETOCLAX [Suspect]
     Active Substance: VENETOCLAX
     Indication: Acute myeloid leukaemia
     Dosage: FREQUENCY: 4-0-0 OF 100 MG
     Route: 048
     Dates: start: 2023
  2. VENETOCLAX [Suspect]
     Active Substance: VENETOCLAX
     Indication: Acute myeloid leukaemia
     Route: 048
     Dates: start: 20230131

REACTIONS (6)
  - Oesophageal stenosis [Unknown]
  - Dysphagia [Recovering/Resolving]
  - Off label use [Recovering/Resolving]
  - Oesophagitis [Recovered/Resolved]
  - General physical health deterioration [Unknown]
  - Hospitalisation [Unknown]

NARRATIVE: CASE EVENT DATE: 20230101
